FAERS Safety Report 4768090-4 (Version None)
Quarter: 2005Q3

REPORT INFORMATION
  Report Type: 
  Country: None (occurrence: None)
  Receive Date: 20050912
  Receipt Date: 20050912
  Transmission Date: 20060218
  Serious: Yes (Death)
  Sender: FDA-Public Use
  Company Number: None

PATIENT
  Age: 81 Year
  Sex: Female
  Weight: 63.5036 kg

DRUGS (3)
  1. BEXTRA [Suspect]
     Indication: OSTEOARTHRITIS
     Dosage: 10 MG QD PO
     Route: 048
     Dates: start: 20040101, end: 20041220
  2. BEXTRA [Suspect]
     Indication: PAIN IN EXTREMITY
     Dosage: 10 MG QD PO
     Route: 048
     Dates: start: 20040101, end: 20041220
  3. VALTREX [Suspect]
     Indication: HERPES ZOSTER
     Dosage: 500 MG QD PO
     Route: 048

REACTIONS (5)
  - CEREBROVASCULAR ACCIDENT [None]
  - CHEYNE-STOKES RESPIRATION [None]
  - LOSS OF CONSCIOUSNESS [None]
  - POSTURE ABNORMAL [None]
  - RESPIRATORY DISORDER [None]
